FAERS Safety Report 7442440-2 (Version None)
Quarter: 2011Q2

REPORT INFORMATION
  Report Type: 
  Country: None (occurrence: None)
  Receive Date: 20110428
  Receipt Date: 20110420
  Transmission Date: 20111010
  Serious: Yes (Other)
  Sender: FDA-Public Use
  Company Number: US-ROCHE-772796

PATIENT
  Sex: Male
  Weight: 101.2 kg

DRUGS (6)
  1. HYDROXYZINE [Concomitant]
     Dosage: DRUG REPORTED AS HYDROXYZINE BROMATED
  2. PROCRIT [Concomitant]
  3. PEGINTERFERON ALFA-2A [Suspect]
     Indication: HEPATITIS C
     Dosage: PRE-FILLED SYRINGE. IN WEEK 27 OF TREATMENT
     Route: 065
     Dates: start: 20101020
  4. RIBAVARIN [Suspect]
     Dosage: LOWERED DOSAGE. IN WEEK 27 OF THE TREATMENT.
     Route: 065
  5. ZIPRASIDONE [Concomitant]
  6. RIBAVARIN [Suspect]
     Indication: HEPATITIS C
     Dosage: DIVIDED DOSES
     Route: 065
     Dates: start: 20101020

REACTIONS (6)
  - WEIGHT DECREASED [None]
  - OROPHARYNGEAL PAIN [None]
  - BLOODY DISCHARGE [None]
  - ODYNOPHAGIA [None]
  - FATIGUE [None]
  - PHARYNGEAL MASS [None]
